FAERS Safety Report 9885550 (Version 4)
Quarter: 2014Q2

REPORT INFORMATION
  Report Type: Spontaneous
  Country: US (occurrence: US)
  Receive Date: 20140210
  Receipt Date: 20140407
  Transmission Date: 20141212
  Serious: Yes (Death, Hospitalization, Other)
  Sender: FDA-Public Use
  Company Number: US-CELGENEUS-163-21660-14020446

PATIENT
  Age: 72 Year
  Sex: Female

DRUGS (1)
  1. ABRAXANE [Suspect]
     Indication: OESOPHAGEAL CARCINOMA
     Route: 041
     Dates: start: 20130919, end: 20130919

REACTIONS (7)
  - Oesophageal carcinoma [Fatal]
  - Failure to thrive [Fatal]
  - Malnutrition [Unknown]
  - Ascites [Unknown]
  - Dysphagia [Unknown]
  - Neutropenia [Unknown]
  - Dehydration [Unknown]
